FAERS Safety Report 12930343 (Version 2)
Quarter: 2016Q4

REPORT INFORMATION
  Report Type: Report from Study
  Country: BR (occurrence: BR)
  Receive Date: 20161110
  Receipt Date: 20161128
  Transmission Date: 20170207
  Serious: Yes (Death)
  Sender: FDA-Public Use
  Company Number: PHHY2016BR148916

PATIENT
  Age: 46 Year
  Sex: Female
  Weight: 71 kg

DRUGS (1)
  1. AFINITOR [Suspect]
     Active Substance: EVEROLIMUS
     Indication: NEUROENDOCRINE TUMOUR
     Dosage: 10 MG, UNK
     Route: 065
     Dates: start: 20160929

REACTIONS (4)
  - Abdominal distension [Unknown]
  - Swelling [Unknown]
  - Discomfort [Unknown]
  - Death [Fatal]

NARRATIVE: CASE EVENT DATE: 20161107
